FAERS Safety Report 13034190 (Version 1)
Quarter: 2016Q4

REPORT INFORMATION
  Report Type: Spontaneous
  Country: US (occurrence: US)
  Receive Date: 20161215
  Receipt Date: 20161215
  Transmission Date: 20170207
  Serious: Yes (Hospitalization)
  Sender: FDA-Public Use
  Company Number: None

PATIENT
  Age: 90 Year
  Sex: Female
  Weight: 46 kg

DRUGS (22)
  1. ACETAMINOPHEN. [Concomitant]
     Active Substance: ACETAMINOPHEN
  2. CALTRATE-D [Concomitant]
     Active Substance: CALCIUM CARBONATE\CHOLECALCIFEROL
  3. CENTRUM [Concomitant]
     Active Substance: VITAMINS
  4. MUCINEX DM [Concomitant]
     Active Substance: DEXTROMETHORPHAN HYDROBROMIDE\GUAIFENESIN
  5. DILTIAZEM. [Concomitant]
     Active Substance: DILTIAZEM
  6. FISH OIL [Concomitant]
     Active Substance: FISH OIL
  7. METROPROLOL TARTRATE [Suspect]
     Active Substance: METOPROLOL TARTRATE
     Indication: HYPERTENSION
     Route: 048
  8. FENTANYL. [Concomitant]
     Active Substance: FENTANYL
  9. BACTROBAN [Concomitant]
     Active Substance: MUPIROCIN\MUPIROCIN CALCIUM
  10. CALCIUM CARBONATE-VITAMIN D [Concomitant]
     Active Substance: CALCIUM CARBONATE\VITAMIN D
  11. CARDIZEM CD [Concomitant]
     Active Substance: DILTIAZEM HYDROCHLORIDE
  12. MAGNESIUM [Concomitant]
     Active Substance: MAGNESIUM
  13. NITROGLYCERIN (NITROSTAT) [Concomitant]
  14. OMEPRAZOLE. [Concomitant]
     Active Substance: OMEPRAZOLE
  15. DEXTROMETHORPHAN-GAUAIFENESIN [Suspect]
     Active Substance: DEXTROMETHORPHAN HYDRIODIDE\GUAIFENESIN
     Indication: COUGH
     Route: 048
     Dates: start: 20161130, end: 20161214
  16. DULCOLAX NOS [Concomitant]
     Active Substance: BISACODYL OR DOCUSATE SODIUM
  17. TYLENOL [Concomitant]
     Active Substance: ACETAMINOPHEN
  18. ASPIRIN. [Concomitant]
     Active Substance: ASPIRIN
  19. DURAGESIC [Concomitant]
     Active Substance: FENTANYL
  20. REMERON [Concomitant]
     Active Substance: MIRTAZAPINE
  21. FERROUS SULFATE. [Concomitant]
     Active Substance: FERROUS SULFATE
  22. MUCINEX DM MAXIMUM STRENGTH [Concomitant]
     Active Substance: DEXTROMETHORPHAN HYDROBROMIDE\GUAIFENESIN

REACTIONS (5)
  - Fall [None]
  - Dementia [None]
  - Syncope [None]
  - Skull fractured base [None]
  - Asthenia [None]

NARRATIVE: CASE EVENT DATE: 20161214
